FAERS Safety Report 18038710 (Version 1)
Quarter: 2020Q3

REPORT INFORMATION
  Report Type: Spontaneous
  Country: US (occurrence: US)
  Receive Date: 20200718
  Receipt Date: 20200718
  Transmission Date: 20201103
  Serious: No
  Sender: FDA-Public Use
  Company Number: US-TARO-2020TAR01111

PATIENT

DRUGS (1)
  1. IBUPROFEN ORAL SUSPENSION 100 MG/5 ML?RX [Suspect]
     Active Substance: IBUPROFEN
     Indication: PRODUCT USED FOR UNKNOWN INDICATION
     Dosage: 40 MILLIGRAM, EVERY 8 HOURS FIRST WEEK AND THEN AS NEEDED
     Route: 048
     Dates: start: 20191202, end: 20191212

REACTIONS (2)
  - Blister [Recovered/Resolved]
  - Rash [Recovered/Resolved]

NARRATIVE: CASE EVENT DATE: 20191202
